FAERS Safety Report 12529727 (Version 1)
Quarter: 2016Q3

REPORT INFORMATION
  Report Type: Spontaneous
  Country: US (occurrence: US)
  Receive Date: 20160706
  Receipt Date: 20160706
  Transmission Date: 20161109
  Serious: Yes (Hospitalization, Other)
  Sender: FDA-Public Use
  Company Number: US-ZYDUS-011491

PATIENT
  Age: 47 Year
  Sex: Female

DRUGS (5)
  1. DOXYCYCLINE. [Suspect]
     Active Substance: DOXYCYCLINE
     Indication: PNEUMONIA
     Route: 065
  2. ESCITALOPRAM [Concomitant]
     Active Substance: ESCITALOPRAM OXALATE
     Indication: PRODUCT USED FOR UNKNOWN INDICATION
     Route: 065
  3. LITHIUM. [Interacting]
     Active Substance: LITHIUM
     Indication: PRODUCT USED FOR UNKNOWN INDICATION
     Dosage: LITHIUM (FOR 10 YEARS)
     Route: 065
  4. ARIPIPRAZOLE. [Concomitant]
     Active Substance: ARIPIPRAZOLE
     Indication: PRODUCT USED FOR UNKNOWN INDICATION
     Route: 065
  5. CLONAZEPAM. [Concomitant]
     Active Substance: CLONAZEPAM
     Indication: PRODUCT USED FOR UNKNOWN INDICATION
     Route: 065

REACTIONS (12)
  - Polydipsia [Unknown]
  - Blood creatinine increased [Recovering/Resolving]
  - Aphasia [Unknown]
  - Hypernatraemia [Recovered/Resolved]
  - Gait disturbance [Unknown]
  - Fine motor skill dysfunction [None]
  - Drug interaction [Unknown]
  - Urine output increased [Unknown]
  - Mental disorder [Recovered/Resolved]
  - Toxicity to various agents [Recovering/Resolving]
  - Resting tremor [Unknown]
  - Nephrogenic diabetes insipidus [Unknown]
